FAERS Safety Report 5552968-8 (Version None)
Quarter: 2007Q4

REPORT INFORMATION
  Report Type: 
  Country: None (occurrence: None)
  Receive Date: 20071206
  Receipt Date: 20071130
  Transmission Date: 20080405
  Serious: Yes (Other)
  Sender: FDA-Public Use
  Company Number: 2007336661

PATIENT
  Age: 72 Year
  Sex: Female

DRUGS (2)
  1. BENADRYL [Suspect]
     Indication: PRURITUS
     Dosage: 1 PILL 2 X'S AS NEEDED, ORAL
     Route: 048
     Dates: start: 20071116
  2. DRUG, UNSPECIFIED (DRUG, UNSPECIFIED) [Concomitant]

REACTIONS (1)
  - HALLUCINATION, VISUAL [None]
